FAERS Safety Report 6254226-5 (Version None)
Quarter: 2009Q3

REPORT INFORMATION
  Report Type: 
  Country: None (occurrence: None)
  Receive Date: 20090702
  Receipt Date: 20090622
  Transmission Date: 20100115
  Serious: Yes (Death)
  Sender: FDA-Public Use
  Company Number: US-BAXTER-2009BH007844

PATIENT
  Age: 27 Year
  Sex: Male
  Weight: 83 kg

DRUGS (5)
  1. ADVATE [Suspect]
     Indication: FACTOR VIII DEFICIENCY
     Route: 042
     Dates: start: 20071101
  2. ADVATE [Suspect]
     Route: 042
     Dates: start: 20071101
  3. ADVATE [Suspect]
     Route: 042
     Dates: start: 20071101
  4. ADVATE [Suspect]
     Route: 042
     Dates: start: 20071101
  5. OXYCODONE [Concomitant]
     Route: 048
     Dates: start: 20080601

REACTIONS (2)
  - LOWER RESPIRATORY TRACT INFLAMMATION [None]
  - THERAPEUTIC AGENT TOXICITY [None]
